FAERS Safety Report 5957496-3 (Version None)
Quarter: 2008Q4

REPORT INFORMATION
  Report Type: 
  Country: None (occurrence: None)
  Receive Date: 20081114
  Receipt Date: 20081105
  Transmission Date: 20090506
  Serious: Yes (Hospitalization)
  Sender: FDA-Public Use
  Company Number: WAES 0810USA00514

PATIENT
  Age: 61 Year
  Sex: Male
  Weight: 106.5953 kg

DRUGS (18)
  1. VORINOSTAT [Suspect]
     Indication: ACUTE MYELOID LEUKAEMIA
     Dosage: 400 MG/DAILY/PO
     Route: 048
     Dates: start: 20080714, end: 20080727
  2. VORINOSTAT [Suspect]
     Indication: ACUTE MYELOID LEUKAEMIA
     Dosage: 400 MG/DAILY/PO
     Route: 048
     Dates: start: 20080811, end: 20080824
  3. VORINOSTAT [Suspect]
     Indication: ACUTE MYELOID LEUKAEMIA
     Dosage: 400 MG/DAILY/PO
     Route: 048
     Dates: start: 20080908, end: 20080921
  4. VORINOSTAT [Suspect]
     Indication: ACUTE MYELOID LEUKAEMIA
     Dosage: 46 MG/DAILY/IV
     Route: 042
     Dates: start: 20080714, end: 20080718
  5. VORINOSTAT [Suspect]
     Indication: ACUTE MYELOID LEUKAEMIA
     Dosage: 46 MG/DAILY/IV
     Route: 042
     Dates: start: 20080811, end: 20080815
  6. VORINOSTAT [Suspect]
     Indication: ACUTE MYELOID LEUKAEMIA
     Dosage: 46 MG/DAILY/IV
     Route: 042
     Dates: start: 20080908, end: 20080912
  7. VICODIN [Concomitant]
  8. ZOFRAN [Suspect]
  9. ACETAMINOPHEN [Concomitant]
  10. ALLOPURINOL [Concomitant]
  11. BISACODYL [Concomitant]
  12. BLOOD CELLS, RED [Concomitant]
  13. DIPHENHYDRAMINE HYDROCHLORIDE [Concomitant]
  14. PANTOPRAZOLE SODIUM [Concomitant]
  15. BIOTENE [Concomitant]
  16. DECITABINE [Suspect]
     Indication: ACUTE MYELOID LEUKAEMIA
     Dosage: 45 MG/ DAILY / IV
     Route: 042
     Dates: start: 20080714, end: 20080718
  17. DECITABINE [Suspect]
     Indication: ACUTE MYELOID LEUKAEMIA
     Dosage: 45 MG/ DAILY / IV
     Route: 042
     Dates: start: 20080811, end: 20080815
  18. DECITABINE [Suspect]
     Indication: ACUTE MYELOID LEUKAEMIA
     Dosage: 45 MG/ DAILY / IV
     Route: 042
     Dates: start: 20080908, end: 20080912

REACTIONS (3)
  - NO THERAPEUTIC RESPONSE [None]
  - PNEUMONIA FUNGAL [None]
  - STENOTROPHOMONAS INFECTION [None]
